FAERS Safety Report 8423636-X (Version None)
Quarter: 2012Q2

REPORT INFORMATION
  Report Type: 
  Country: None (occurrence: None)
  Receive Date: 20120608
  Receipt Date: 20120605
  Transmission Date: 20120825
  Serious: No
  Sender: FDA-Public Use
  Company Number: US-PFIZER INC-2012135973

PATIENT
  Sex: Female
  Weight: 68.027 kg

DRUGS (6)
  1. ZOLOFT [Concomitant]
     Indication: DEPRESSION
     Dosage: 75 MG, DAILY
  2. EFFEXOR [Suspect]
     Indication: PANIC ATTACK
     Dosage: 250 MG, DAILY
     Dates: start: 20110101
  3. XANAX [Concomitant]
     Indication: ANXIETY
     Dosage: 4 MG, DAILY
     Route: 048
  4. SIMVASTATIN [Concomitant]
     Indication: BLOOD CHOLESTEROL INCREASED
     Dosage: 75 MG, DAILY
  5. EFFEXOR [Suspect]
     Indication: DEPRESSION
     Dosage: 75 MG, DAILY
  6. EFFEXOR [Suspect]
     Indication: ANXIETY
     Dosage: 150 MG, DAILY
     Dates: start: 20110101

REACTIONS (3)
  - DRUG DOSE OMISSION [None]
  - WITHDRAWAL SYNDROME [None]
  - NIGHTMARE [None]
